FAERS Safety Report 20636039 (Version 1)
Quarter: 2022Q1

REPORT INFORMATION
  Report Type: Spontaneous
  Country: US (occurrence: None)
  Receive Date: 20220324
  Receipt Date: 20220324
  Transmission Date: 20220424
  Serious: Yes (Disabling)
  Sender: FDA-Public Use
  Company Number: None

PATIENT
  Age: 32 Year
  Sex: Female
  Weight: 65.25 kg

DRUGS (1)
  1. AMPHETAMINE\DEXTROAMPHETAMINE [Suspect]
     Active Substance: AMPHETAMINE\DEXTROAMPHETAMINE
     Indication: Attention deficit hyperactivity disorder
     Dosage: OTHER QUANTITY : 1 TABLET(S);?FREQUENCY : TWICE A DAY;?
     Route: 048
     Dates: start: 20210601, end: 20220322

REACTIONS (7)
  - Product substitution issue [None]
  - Heart rate increased [None]
  - Blood pressure increased [None]
  - Hypoaesthesia [None]
  - Hypoaesthesia [None]
  - Asthenia [None]
  - Facial paralysis [None]

NARRATIVE: CASE EVENT DATE: 20220113
